FAERS Safety Report 23552873 (Version 1)
Quarter: 2024Q1

REPORT INFORMATION
  Report Type: Spontaneous
  Country: US (occurrence: None)
  Receive Date: 20240221
  Receipt Date: 20240221
  Transmission Date: 20240410
  Serious: Yes (Hospitalization)
  Sender: FDA-Public Use
  Company Number: None

PATIENT
  Age: 84 Year
  Sex: Female

DRUGS (4)
  1. LENALIDOMIDE [Suspect]
     Active Substance: LENALIDOMIDE
     Indication: Plasma cell myeloma
     Dosage: 15MG QOD ORAL?
     Route: 048
     Dates: start: 20220825
  2. PRADAXA [Suspect]
     Active Substance: DABIGATRAN ETEXILATE MESYLATE
  3. DEXAMETHASONE [Suspect]
     Active Substance: DEXAMETHASONE
  4. ISATUXIMAB [Suspect]
     Active Substance: ISATUXIMAB

REACTIONS (5)
  - Anaemia [None]
  - Troponin decreased [None]
  - Rash [None]
  - Myocardial ischaemia [None]
  - Therapy change [None]

NARRATIVE: CASE EVENT DATE: 20240209
